FAERS Safety Report 5678970-3 (Version None)
Quarter: 2008Q1

REPORT INFORMATION
  Report Type: 
  Country: None (occurrence: None)
  Receive Date: 20080325
  Receipt Date: 20080324
  Transmission Date: 20080703
  Serious: Yes (Other)
  Sender: FDA-Public Use
  Company Number: A0716931A

PATIENT
  Age: 43 Year
  Sex: Male

DRUGS (1)
  1. ALLI [Suspect]
     Indication: WEIGHT CONTROL
     Route: 048

REACTIONS (5)
  - HEARING IMPAIRED [None]
  - HYDROCEPHALUS [None]
  - TINNITUS [None]
  - VIRAL INFECTION [None]
  - VISUAL DISTURBANCE [None]
